FAERS Safety Report 5213981-3 (Version None)
Quarter: 2007Q1

REPORT INFORMATION
  Report Type: 
  Country: None (occurrence: None)
  Receive Date: 20070122
  Receipt Date: 20070109
  Transmission Date: 20070707
  Serious: Yes (Hospitalization)
  Sender: FDA-Public Use
  Company Number: US-JNJFOC-20070102313

PATIENT
  Sex: Female
  Weight: 58.97 kg

DRUGS (8)
  1. DURAGESIC-100 [Suspect]
     Route: 062
  2. DURAGESIC-100 [Suspect]
     Indication: FIBROMYALGIA
     Route: 062
  3. COREG [Concomitant]
     Indication: HEART RATE IRREGULAR
  4. PROZAC [Concomitant]
  5. HYDRALAZINE HCL [Concomitant]
     Indication: HYPERTENSION
  6. XANAX [Concomitant]
     Indication: NERVOUSNESS
     Route: 048
  7. LEVOTHYROXINE SODIUM [Concomitant]
     Indication: HYPOTHYROIDISM
     Route: 048
  8. ALPRAZOLAM [Concomitant]
     Indication: NERVOUSNESS
     Route: 048

REACTIONS (5)
  - CARDIAC VALVE DISEASE [None]
  - DEPRESSION [None]
  - HEART RATE IRREGULAR [None]
  - HYPERTENSION [None]
  - PROTEIN TOTAL ABNORMAL [None]
